FAERS Safety Report 4698989-9 (Version None)
Quarter: 2005Q2

REPORT INFORMATION
  Report Type: 
  Country: None (occurrence: None)
  Receive Date: 20050622
  Receipt Date: 20050622
  Transmission Date: 20051028
  Serious: No
  Sender: FDA-Public Use
  Company Number: None

PATIENT
  Age: 48 Year
  Sex: Female
  Weight: 82.1011 kg

DRUGS (1)
  1. SYNTHROID [Suspect]
     Dosage: 1 Q PO
     Route: 048
     Dates: start: 20040101

REACTIONS (1)
  - LABORATORY TEST ABNORMAL [None]
